FAERS Safety Report 10990085 (Version 1)
Quarter: 2015Q1

REPORT INFORMATION
  Report Type: Spontaneous
  Country: US (occurrence: None)
  Receive Date: 20150326
  Receipt Date: 20150326
  Transmission Date: 20150721
  Serious: No
  Sender: FDA-Public Use
  Company Number: 1000074146

PATIENT
  Sex: Female

DRUGS (2)
  1. LINZESS [Suspect]
     Active Substance: LINACLOTIDE
     Indication: IRRITABLE BOWEL SYNDROME
     Dosage: 145 MCG, 1 IN 2 D
     Route: 048
     Dates: start: 201409, end: 20150122
  2. LINZESS [Suspect]
     Active Substance: LINACLOTIDE
     Indication: CONSTIPATION
     Dosage: 145 MCG, 1 IN 2 D
     Route: 048
     Dates: start: 201409, end: 20150122

REACTIONS (4)
  - Diarrhoea [None]
  - Vision blurred [None]
  - Dry eye [None]
  - Intentional product misuse [None]

NARRATIVE: CASE EVENT DATE: 201409
